FAERS Safety Report 7117393-7 (Version None)
Quarter: 2010Q4

REPORT INFORMATION
  Report Type: 
  Country: None (occurrence: None)
  Receive Date: 20101122
  Receipt Date: 20100725
  Transmission Date: 20110411
  Serious: Yes (Other)
  Sender: FDA-Public Use
  Company Number: PHHY2010TR49283

PATIENT
  Age: 43 Year
  Sex: Female

DRUGS (3)
  1. CYCLOSPORINE [Suspect]
     Dosage: 2 MG/KG/DAY
  2. METHYLPREDNISOLONE [Concomitant]
     Dosage: 1MG/KG/DAY
  3. METHYLPREDNISOLONE [Concomitant]
     Dosage: 4MG/KG/DAY

REACTIONS (2)
  - FOCAL SEGMENTAL GLOMERULOSCLEROSIS [None]
  - GASTROINTESTINAL DISORDER [None]
